FAERS Safety Report 23753722 (Version 2)
Quarter: 2025Q1

REPORT INFORMATION
  Report Type: Spontaneous
  Country: CA (occurrence: CA)
  Receive Date: 20240417
  Receipt Date: 20250123
  Transmission Date: 20250409
  Serious: Yes (Other)
  Sender: RANBAXY
  Company Number: CA-SUN PHARMACEUTICAL INDUSTRIES LTD-2024R1-441668

PATIENT
  Age: 31 Year
  Sex: Male
  Weight: 105 kg

DRUGS (10)
  1. HALOPERIDOL [Suspect]
     Active Substance: HALOPERIDOL
     Indication: Psychotic disorder
     Route: 065
  2. CLOZAPINE [Suspect]
     Active Substance: CLOZAPINE
     Indication: Psychotic disorder
     Route: 065
  3. CLOZAPINE [Suspect]
     Active Substance: CLOZAPINE
     Route: 065
  4. FLUPHENAZINE [Concomitant]
     Active Substance: FLUPHENAZINE
     Indication: Psychotic disorder
     Route: 065
  5. RISPERIDONE [Concomitant]
     Active Substance: RISPERIDONE
     Indication: Psychotic disorder
     Route: 065
  6. PALIPERIDONE [Concomitant]
     Active Substance: PALIPERIDONE
     Indication: Psychotic disorder
     Route: 065
  7. OLANZAPINE [Concomitant]
     Active Substance: OLANZAPINE
     Indication: Psychotic disorder
     Route: 065
  8. ARIPIPRAZOLE [Concomitant]
     Active Substance: ARIPIPRAZOLE
     Indication: Psychotic disorder
     Route: 065
  9. SERTRALINE [Concomitant]
     Active Substance: SERTRALINE HYDROCHLORIDE
     Indication: Psychotic disorder
     Route: 065
  10. CITALOPRAM [Concomitant]
     Active Substance: CITALOPRAM
     Indication: Psychotic disorder
     Route: 065

REACTIONS (6)
  - Akathisia [Unknown]
  - Tachycardia [Unknown]
  - Weight increased [Unknown]
  - Sedation [Unknown]
  - Salivary hypersecretion [Unknown]
  - Enuresis [Unknown]
